FAERS Safety Report 6565789-4 (Version None)
Quarter: 2010Q1

REPORT INFORMATION
  Report Type: 
  Country: None (occurrence: None)
  Receive Date: 20100126
  Receipt Date: 20100114
  Transmission Date: 20100710
  Serious: Yes (Other)
  Sender: FDA-Public Use
  Company Number: 234560K09USA

PATIENT
  Age: 46 Year
  Sex: Female
  Weight: 92 kg

DRUGS (7)
  1. REBIF [Suspect]
     Indication: MULTIPLE SCLEROSIS
     Dosage: 44 MCG, 3 IN 1 WEEKS, SUBCUTANEOUS
     Route: 058
     Dates: start: 20070830
  2. ATORVASTATIN CALCIUM [Suspect]
     Indication: BLOOD CHOLESTEROL INCREASED
     Dates: end: 20080101
  3. BUPROPION HCL [Concomitant]
  4. INSULIN (INSULIN /00030501/) [Concomitant]
  5. KETAMINE (KETAMINE /00171201/) [Concomitant]
  6. ASPIRIN [Concomitant]
  7. ORAL DIABETIC AGENTS (ORAL ANTIDIABETICS) [Concomitant]

REACTIONS (5)
  - ALANINE AMINOTRANSFERASE INCREASED [None]
  - ASPARTATE AMINOTRANSFERASE INCREASED [None]
  - INJECTION SITE PAIN [None]
  - LIVER FUNCTION TEST ABNORMAL [None]
  - VITAMIN D DEFICIENCY [None]
